FAERS Safety Report 9692426 (Version 1)
Quarter: 2013Q4

REPORT INFORMATION
  Report Type: Spontaneous
  Country: US (occurrence: US)
  Receive Date: 20131118
  Receipt Date: 20131118
  Transmission Date: 20140711
  Serious: No
  Sender: FDA-Public Use
  Company Number: US-PFIZER INC-2013324984

PATIENT
  Sex: Female

DRUGS (8)
  1. FLAGYL [Suspect]
     Dosage: UNK
  2. METRONIDAZOLE [Suspect]
     Dosage: UNK
  3. MANDOL [Suspect]
     Dosage: UNK
  4. TEGRETOL [Suspect]
     Dosage: UNK
  5. CARBAMAZEPINE [Suspect]
     Dosage: UNK
  6. CEFAMANDOLE [Suspect]
     Dosage: UNK
  7. HYDROCODONE [Suspect]
     Dosage: UNK
  8. HYDROCODONE W/ACETAMINOPHEN [Suspect]
     Dosage: UNK

REACTIONS (1)
  - Drug hypersensitivity [Unknown]
